FAERS Safety Report 10648078 (Version 1)
Quarter: 2014Q4

REPORT INFORMATION
  Report Type: Spontaneous
  Country: US (occurrence: None)
  Receive Date: 20141211
  Receipt Date: 20141211
  Transmission Date: 20150529
  Serious: Yes (Hospitalization)
  Sender: FDA-Public Use
  Company Number: None

PATIENT
  Age: 16 Year
  Sex: Female
  Weight: 77.11 kg

DRUGS (4)
  1. PAXIL [Suspect]
     Active Substance: PAROXETINE HYDROCHLORIDE
     Indication: ANXIETY
     Dosage: STRENGTH: 40 MG, QUANTITY: 1 PILL, FREQUENCY: 1 DAILY, MOUTH
     Route: 048
  2. DONAPRAM [Concomitant]
  3. PAXIL [Suspect]
     Active Substance: PAROXETINE HYDROCHLORIDE
     Indication: AGORAPHOBIA
     Dosage: STRENGTH: 40 MG, QUANTITY: 1 PILL, FREQUENCY: 1 DAILY, MOUTH
     Route: 048
  4. LEXIPRO [Concomitant]

REACTIONS (9)
  - Anxiety [None]
  - Sleep disorder [None]
  - Paraesthesia [None]
  - Withdrawal syndrome [None]
  - Nausea [None]
  - Dizziness [None]
  - Hypophagia [None]
  - Hallucination [None]
  - Suicidal ideation [None]

NARRATIVE: CASE EVENT DATE: 201407
